FAERS Safety Report 18784626 (Version 3)
Quarter: 2021Q1

REPORT INFORMATION
  Report Type: Spontaneous
  Country: US (occurrence: US)
  Receive Date: 20210126
  Receipt Date: 20210319
  Transmission Date: 20210419
  Serious: No
  Sender: FDA-Public Use
  Company Number: US-ASTRAZENECA-2021A001484

PATIENT
  Age: 25297 Day
  Sex: Female
  Weight: 86.6 kg

DRUGS (5)
  1. SINGULAIR [Concomitant]
     Active Substance: MONTELUKAST SODIUM
     Indication: ASTHMA
     Route: 048
  2. LEVALBUTERO [Concomitant]
     Indication: ASTHMA
     Route: 055
  3. IPRATROPIUM BROMIDE. [Concomitant]
     Active Substance: IPRATROPIUM BROMIDE
     Indication: ASTHMA
     Route: 055
  4. SYMBICORT [Suspect]
     Active Substance: BUDESONIDE\FORMOTEROL FUMARATE DIHYDRATE
     Indication: ASTHMA
     Dosage: 160/4.5 MCG TWO INHALATIONS TWICE A DAY
     Route: 055
     Dates: start: 20201225
  5. NAVOCORT [Concomitant]
     Indication: ASTHMA
     Dosage: DAILY
     Route: 045

REACTIONS (7)
  - Chest discomfort [Unknown]
  - Dust allergy [Unknown]
  - Drug dose omission by device [Unknown]
  - Asthma [Unknown]
  - Intentional device misuse [Unknown]
  - Device delivery system issue [Unknown]
  - Weight decreased [Unknown]

NARRATIVE: CASE EVENT DATE: 20201225
